FAERS Safety Report 4751074-X (Version None)
Quarter: 2005Q3

REPORT INFORMATION
  Report Type: 
  Country: None (occurrence: None)
  Receive Date: 20050822
  Receipt Date: 20050807
  Transmission Date: 20060218
  Serious: Yes (Death)
  Sender: FDA-Public Use
  Company Number: 05USA0172

PATIENT
  Sex: Male

DRUGS (4)
  1. AGGRASTAT [Suspect]
     Indication: ACUTE MYOCARDIAL INFARCTION
     Dates: start: 20050412, end: 20050412
  2. ASPIRIN [Concomitant]
  3. CLOPIDOGREL BISULFATE [Concomitant]
  4. HEPARIN [Concomitant]

REACTIONS (3)
  - MYOCARDIAL INFARCTION [None]
  - THERAPY NON-RESPONDER [None]
  - VENTRICULAR TACHYCARDIA [None]
